FAERS Safety Report 11265234 (Version 1)
Quarter: 2015Q3

REPORT INFORMATION
  Report Type: Spontaneous
  Country: US (occurrence: US)
  Receive Date: 20150713
  Receipt Date: 20150713
  Transmission Date: 20151125
  Serious: No
  Sender: FDA-Public Use
  Company Number: US-GLAXOSMITHKLINE-US2015099892

PATIENT
  Age: 72 Year
  Sex: Female

DRUGS (2)
  1. ABREVA [Suspect]
     Active Substance: DOCOSANOL
     Indication: CHAPPED LIPS
  2. ABREVA [Suspect]
     Active Substance: DOCOSANOL
     Indication: ULCER
     Dosage: UNK
     Dates: start: 20150708, end: 20150710

REACTIONS (1)
  - Drug administration error [Unknown]
